FAERS Safety Report 25375152 (Version 3)
Quarter: 2025Q3

REPORT INFORMATION
  Report Type: Report from Study
  Country: US (occurrence: US)
  Receive Date: 20250529
  Receipt Date: 20250826
  Transmission Date: 20251021
  Serious: Yes (Hospitalization, Other)
  Sender: CSL BEHRING
  Company Number: US-BEH-2025204545

PATIENT
  Age: 59 Year
  Sex: Female
  Weight: 54.422 kg

DRUGS (10)
  1. BERINERT [Suspect]
     Active Substance: HUMAN C1-ESTERASE INHIBITOR
     Indication: Hereditary angioedema
     Route: 058
     Dates: start: 20250506, end: 20250506
  2. BERINERT [Suspect]
     Active Substance: HUMAN C1-ESTERASE INHIBITOR
     Indication: Prophylaxis
     Dosage: 60 IU/KG, BIW
     Route: 058
     Dates: start: 20250521
  3. BERINERT [Suspect]
     Active Substance: HUMAN C1-ESTERASE INHIBITOR
     Indication: Pulmonary vascular disorder
     Dosage: 4369 IU, BIW
     Route: 058
  4. BERINERT [Suspect]
     Active Substance: HUMAN C1-ESTERASE INHIBITOR
     Dosage: 2000 IU, BIW (ADMINISTER 3250 UNITS (6.5 ML) SUBCUTANEOUSLY TWICE PER WEEK (EVERY 3 TO 4 DAYS)
     Route: 058
     Dates: start: 20250411
  5. BERINERT [Suspect]
     Active Substance: HUMAN C1-ESTERASE INHIBITOR
     Indication: Hereditary angioedema
     Route: 058
     Dates: start: 20250506, end: 20250506
  6. BERINERT [Suspect]
     Active Substance: HUMAN C1-ESTERASE INHIBITOR
     Indication: Prophylaxis
  7. CARVEDILOL [Concomitant]
     Active Substance: CARVEDILOL
  8. EPIPEN [Concomitant]
     Active Substance: EPINEPHRINE
  9. NIFEDIPINE [Concomitant]
     Active Substance: NIFEDIPINE
  10. SODIUM CHLORIDE [Concomitant]
     Active Substance: SODIUM CHLORIDE

REACTIONS (6)
  - Hereditary angioedema [Recovering/Resolving]
  - Apnoea [Unknown]
  - Unresponsive to stimuli [Recovered/Resolved]
  - Blood sodium decreased [Recovered/Resolved]
  - Headache [Recovering/Resolving]
  - Product use in unapproved indication [Unknown]

NARRATIVE: CASE EVENT DATE: 20250521
